FAERS Safety Report 20255938 (Version 1)
Quarter: 2021Q4

REPORT INFORMATION
  Report Type: Spontaneous
  Country: US (occurrence: US)
  Receive Date: 20211230
  Receipt Date: 20211230
  Transmission Date: 20220303
  Serious: Yes (Other)
  Sender: FDA-Public Use
  Company Number: US-GLAXOSMITHKLINE-US2021GSK264260

PATIENT
  Sex: Male

DRUGS (20)
  1. ZANTAC [Suspect]
     Active Substance: RANITIDINE HYDROCHLORIDE
     Indication: Dyspepsia
     Dosage: UNKNOWN AT THIS TIME, QD
     Route: 065
     Dates: start: 198601, end: 201801
  2. ZANTAC [Suspect]
     Active Substance: RANITIDINE HYDROCHLORIDE
     Indication: Gastrooesophageal reflux disease
     Dosage: UNKNOWN AT THIS TIME, BID
     Route: 065
     Dates: start: 198601, end: 201801
  3. ZANTAC [Suspect]
     Active Substance: RANITIDINE HYDROCHLORIDE
     Indication: Dyspepsia
  4. ZANTAC [Suspect]
     Active Substance: RANITIDINE HYDROCHLORIDE
     Indication: Throat cancer
  5. ZANTAC [Suspect]
     Active Substance: RANITIDINE HYDROCHLORIDE
     Indication: Prostate cancer
  6. ZANTAC [Suspect]
     Active Substance: RANITIDINE HYDROCHLORIDE
     Indication: Dyspepsia
     Dosage: UNKNOWN AT THIS TIME, QD
     Route: 065
     Dates: start: 198601, end: 201801
  7. ZANTAC [Suspect]
     Active Substance: RANITIDINE HYDROCHLORIDE
     Indication: Gastrooesophageal reflux disease
     Dosage: UNKNOWN AT THIS TIME, BID
     Route: 065
     Dates: start: 198601, end: 201801
  8. ZANTAC [Suspect]
     Active Substance: RANITIDINE HYDROCHLORIDE
     Indication: Dyspepsia
  9. ZANTAC [Suspect]
     Active Substance: RANITIDINE HYDROCHLORIDE
     Indication: Throat cancer
  10. ZANTAC [Suspect]
     Active Substance: RANITIDINE HYDROCHLORIDE
     Indication: Prostate cancer
  11. RANITIDINE [Suspect]
     Active Substance: RANITIDINE
     Indication: Dyspepsia
     Dosage: UNKNOWN AT THIS TIME, QD
     Route: 065
     Dates: start: 198601, end: 201801
  12. RANITIDINE [Suspect]
     Active Substance: RANITIDINE
     Indication: Gastrooesophageal reflux disease
     Dosage: UNKNOWN AT THIS TIME, BID
     Route: 065
     Dates: start: 198601, end: 201801
  13. RANITIDINE [Suspect]
     Active Substance: RANITIDINE
     Indication: Dyspepsia
  14. RANITIDINE [Suspect]
     Active Substance: RANITIDINE
     Indication: Throat cancer
  15. RANITIDINE [Suspect]
     Active Substance: RANITIDINE
     Indication: Prostate cancer
  16. RANITIDINE [Suspect]
     Active Substance: RANITIDINE
     Indication: Dyspepsia
     Dosage: UNKNOWN AT THIS TIME, QD
     Route: 065
     Dates: start: 198601, end: 201801
  17. RANITIDINE [Suspect]
     Active Substance: RANITIDINE
     Indication: Gastrooesophageal reflux disease
     Dosage: UNKNOWN AT THIS TIME, BID
     Route: 065
     Dates: start: 198601, end: 201801
  18. RANITIDINE [Suspect]
     Active Substance: RANITIDINE
     Indication: Dyspepsia
  19. RANITIDINE [Suspect]
     Active Substance: RANITIDINE
     Indication: Throat cancer
  20. RANITIDINE [Suspect]
     Active Substance: RANITIDINE
     Indication: Prostate cancer

REACTIONS (2)
  - Oesophageal carcinoma [Unknown]
  - Prostate cancer [Unknown]
